FAERS Safety Report 16190556 (Version 1)
Quarter: 2019Q2

REPORT INFORMATION
  Report Type: Spontaneous
  Country: CN (occurrence: CN)
  Receive Date: 20190412
  Receipt Date: 20190412
  Transmission Date: 20190711
  Serious: Yes (Hospitalization)
  Sender: FDA-Public Use
  Company Number: CN-PFIZER INC-2019151683

PATIENT
  Age: 92 Year
  Sex: Male
  Weight: 49 kg

DRUGS (1)
  1. VORICONAZOLE. [Suspect]
     Active Substance: VORICONAZOLE
     Indication: PNEUMONIA
     Dosage: 0.200 G, 2X/DAY
     Route: 041
     Dates: start: 20190322, end: 20190326

REACTIONS (4)
  - Hallucination [Recovering/Resolving]
  - Mental disorder [Recovering/Resolving]
  - Visual impairment [Recovering/Resolving]
  - Hallucination, visual [Recovering/Resolving]

NARRATIVE: CASE EVENT DATE: 20190323
